FAERS Safety Report 13048265 (Version 3)
Quarter: 2017Q4

REPORT INFORMATION
  Report Type: Report from Study
  Country: None (occurrence: FR)
  Receive Date: 20161220
  Receipt Date: 20171013
  Transmission Date: 20180320
  Serious: Yes (Death, Hospitalization)
  Sender: FDA-Public Use
  Company Number: FR-ABBVIE-16P-056-1816334-00

PATIENT
  Age: 71 Year
  Sex: Female
  Weight: 68 kg

DRUGS (3)
  1. LEVOTHYROX [Concomitant]
     Active Substance: LEVOTHYROXINE
     Indication: HYPOTHYROIDISM
  2. VENETOCLAX. [Suspect]
     Active Substance: VENETOCLAX
     Indication: CHRONIC LYMPHOCYTIC LEUKAEMIA
     Route: 048
     Dates: start: 20160930, end: 20161018
  3. RASBURICASE [Concomitant]
     Active Substance: RASBURICASE
     Indication: PREMEDICATION
     Dosage: STARTED BEFORE VENETOCLAX INITIATION

REACTIONS (5)
  - Chronic lymphocytic leukaemia [Fatal]
  - Tumour lysis syndrome [Recovered/Resolved]
  - Renal failure [Fatal]
  - Richter^s syndrome [Fatal]
  - Treatment failure [Fatal]

NARRATIVE: CASE EVENT DATE: 2016
